FAERS Safety Report 7493384-1 (Version None)
Quarter: 2011Q2

REPORT INFORMATION
  Report Type: 
  Country: None (occurrence: None)
  Receive Date: 20110520
  Receipt Date: 20110511
  Transmission Date: 20111010
  Serious: Yes (Other)
  Sender: FDA-Public Use
  Company Number: CO-AMGEN-COLSP2010006886

PATIENT
  Age: 49 Year
  Sex: Male

DRUGS (8)
  1. PREDNISOLONE [Concomitant]
     Indication: IMMUNOMODULATORY THERAPY
     Dosage: 5 MG, 1X/DAY
     Dates: start: 20030101
  2. OMEPRAZOLE [Concomitant]
     Indication: LIVER DISORDER
  3. ARAVA [Concomitant]
     Indication: RHEUMATOID ARTHRITIS
     Dosage: 20 MG, 1X/DAY
     Dates: start: 20100701
  4. PREDNISOLONE [Concomitant]
     Indication: RHEUMATOID ARTHRITIS
  5. SULFASALAZINE [Concomitant]
     Indication: RHEUMATOID ARTHRITIS
     Dosage: 1000 MG, 2X/DAY
  6. ACETAMINOPHEN [Concomitant]
     Indication: PAIN
     Dosage: 500 MG, AS NEEDED
  7. OMEPRAZOLE [Concomitant]
     Indication: GASTRIC DISORDER
     Dosage: 20 MG, 1X/DAY
  8. ENBREL [Suspect]
     Indication: RHEUMATOID ARTHRITIS
     Dosage: 50 MG, WEEKLY
     Dates: start: 20100901

REACTIONS (8)
  - BRONCHITIS [None]
  - PYREXIA [None]
  - OCULAR HYPERAEMIA [None]
  - DRY EYE [None]
  - INJECTION SITE INDURATION [None]
  - ABNORMAL SENSATION IN EYE [None]
  - INJECTION SITE IRRITATION [None]
  - INJECTION SITE INFLAMMATION [None]
